FAERS Safety Report 8050671-6 (Version None)
Quarter: 2012Q1

REPORT INFORMATION
  Report Type: 
  Country: None (occurrence: None)
  Receive Date: 20120117
  Receipt Date: 20120117
  Transmission Date: 20120608
  Serious: No
  Sender: FDA-Public Use
  Company Number: None

PATIENT
  Age: 56 Year
  Sex: Male
  Weight: 67.131 kg

DRUGS (1)
  1. GEODON [Suspect]
     Indication: APATHY
     Dosage: 80 MG.
     Route: 048
     Dates: start: 20110923, end: 20111118

REACTIONS (2)
  - HYPOAESTHESIA [None]
  - PAIN IN EXTREMITY [None]
